FAERS Safety Report 24986772 (Version 2)
Quarter: 2025Q1

REPORT INFORMATION
  Report Type: Spontaneous
  Country: US (occurrence: US)
  Receive Date: 20250219
  Receipt Date: 20250311
  Transmission Date: 20250408
  Serious: No
  Sender: AMGEN
  Company Number: US-AMGEN-USASP2025032319

PATIENT
  Sex: Male

DRUGS (2)
  1. AIMOVIG [Suspect]
     Active Substance: ERENUMAB-AOOE
     Indication: Product used for unknown indication
     Route: 065
  2. AIMOVIG [Suspect]
     Active Substance: ERENUMAB-AOOE
     Route: 065

REACTIONS (2)
  - Injury associated with device [Unknown]
  - Wrong technique in product usage process [Unknown]

NARRATIVE: CASE EVENT DATE: 20250213
